FAERS Safety Report 5890708-3 (Version None)
Quarter: 2008Q3

REPORT INFORMATION
  Report Type: 
  Country: None (occurrence: None)
  Receive Date: 20080922
  Receipt Date: 20080908
  Transmission Date: 20090109
  Serious: Yes (Hospitalization)
  Sender: FDA-Public Use
  Company Number: PL-ROCHE-585525

PATIENT
  Sex: Female
  Weight: 88 kg

DRUGS (8)
  1. MYCOPHENOLATE MOFETIL [Suspect]
     Indication: RENAL TRANSPLANT
     Route: 048
     Dates: start: 20041108
  2. CYCLOSPORINE [Concomitant]
     Dates: start: 20030611
  3. AMLODIPINE [Concomitant]
     Dates: start: 20040203
  4. DOXAZOSIN MESYLATE [Concomitant]
     Dates: start: 20061122, end: 20070403
  5. FUROSEMID [Concomitant]
     Dates: start: 20030611
  6. VEROSPIRON [Concomitant]
     Dates: start: 20040629
  7. ACETYL SALICYLIC ACID COMPOUND TAB [Concomitant]
     Dates: start: 20050602
  8. CARVEDILOL [Concomitant]
     Dates: start: 20031017

REACTIONS (1)
  - BREAST NEOPLASM [None]
